FAERS Safety Report 4739698-7 (Version None)
Quarter: 2005Q3

REPORT INFORMATION
  Report Type: 
  Country: None (occurrence: None)
  Receive Date: 20050810
  Receipt Date: 20050428
  Transmission Date: 20060218
  Serious: No
  Sender: FDA-Public Use
  Company Number: US-GLAXOSMITHKLINE-A0556186A

PATIENT
  Age: 47 Year
  Sex: Female

DRUGS (5)
  1. PAXIL [Suspect]
     Dosage: 50MG PER DAY
     Route: 048
     Dates: start: 20041101
  2. REMERON [Concomitant]
  3. GEODON [Concomitant]
  4. KLONOPIN [Concomitant]
  5. AMBIEN [Concomitant]

REACTIONS (2)
  - DRUG INEFFECTIVE [None]
  - INSOMNIA [None]
